FAERS Safety Report 17110398 (Version 1)
Quarter: 2019Q4

REPORT INFORMATION
  Report Type: Spontaneous
  Country: US (occurrence: US)
  Receive Date: 20191204
  Receipt Date: 20191204
  Transmission Date: 20200122
  Serious: Yes (Hospitalization)
  Sender: FDA-Public Use
  Company Number: US-HORIZON-PRO-0258-2018

PATIENT
  Age: 22 Year
  Sex: Male

DRUGS (1)
  1. PROCYSBI [Suspect]
     Active Substance: CYSTEAMINE BITARTRATE
     Indication: CYSTINOSIS
     Dosage: 1125 MG (75X 15 CAPSULES) EVERY 12 HOURS
     Route: 048

REACTIONS (1)
  - Transplant [Unknown]

NARRATIVE: CASE EVENT DATE: 2019
